FAERS Safety Report 5124551-X (Version None)
Quarter: 2006Q3

REPORT INFORMATION
  Report Type: 
  Country: None (occurrence: None)
  Receive Date: 20060821
  Receipt Date: 20060621
  Transmission Date: 20061208
  Serious: No
  Sender: FDA-Public Use
  Company Number: TPA2006A01026

PATIENT
  Age: 61 Year
  Sex: Male
  Weight: 72.5755 kg

DRUGS (8)
  1. ROZEREM [Suspect]
     Indication: SLEEP DISORDER
     Dosage: 8 MG, 30 MINUTES BEFORE BEDTIME, PER ORAL
     Route: 048
     Dates: start: 20060612, end: 20060613
  2. SONATA [Suspect]
     Indication: SLEEP DISORDER
     Dosage: 10 MG, QHS, PER ORAL
     Route: 048
     Dates: start: 20040101
  3. VERAPAMIL (VERAPAMIL) (240 MILLIGRAM) [Concomitant]
  4. COZAAR (LOSARTAN POTASSIUM) (100 MILLIGRAM) [Concomitant]
  5. ZOCOR (SIMVASTATIN) (10 MILLIGRAM) [Concomitant]
  6. COUMADIN (WARFARIN SODIUM) (2.5 MILLIGRAM) [Concomitant]
  7. DITROPAN (OXYBUTYNIN HYDROCHLORIDE) (5 MILLIGRAM) [Concomitant]
  8. FLOMAX (TAMSULOSIN HYDROCHLORIDE) (0.4 MILLIGRAM) [Concomitant]

REACTIONS (3)
  - FATIGUE [None]
  - FEELING ABNORMAL [None]
  - INITIAL INSOMNIA [None]
